FAERS Safety Report 4685809-1 (Version None)
Quarter: 2005Q2

REPORT INFORMATION
  Report Type: 
  Country: None (occurrence: None)
  Receive Date: 20050607
  Receipt Date: 20050607
  Transmission Date: 20051028
  Serious: Yes (Hospitalization)
  Sender: FDA-Public Use
  Company Number: None

PATIENT
  Age: 76 Year
  Sex: Male

DRUGS (6)
  1. THALIDOMIDE [Suspect]
     Indication: MANTLE CELL LYMPHOMA
     Route: 048
  2. RITUXAN [Suspect]
     Indication: MANTLE CELL LYMPHOMA
     Route: 042
     Dates: end: 20050526
  3. PROCARBAZINE 50 MG PO QD [Suspect]
     Indication: MANTLE CELL LYMPHOMA
     Route: 048
     Dates: end: 20050601
  4. ETOPOSIDE [Suspect]
     Route: 048
  5. PREDNISONE 50MG PO QD [Suspect]
     Route: 048
  6. CYTOXAN [Suspect]
     Route: 048

REACTIONS (7)
  - ASTHENIA [None]
  - CEREBROVASCULAR ACCIDENT [None]
  - CONSTIPATION [None]
  - ENDOCARDITIS [None]
  - FATIGUE [None]
  - NIGHT SWEATS [None]
  - PYREXIA [None]
